FAERS Safety Report 6024426-8 (Version None)
Quarter: 2008Q4

REPORT INFORMATION
  Report Type: 
  Country: None (occurrence: None)
  Receive Date: 20081224
  Receipt Date: 20081215
  Transmission Date: 20090506
  Serious: Yes (Death)
  Sender: FDA-Public Use
  Company Number: 2008-03777

PATIENT
  Age: 39 Year
  Sex: Male

DRUGS (3)
  1. VELCADE [Suspect]
     Indication: MULTIPLE MYELOMA
     Dates: start: 20080902
  2. DEXAMETHASONE [Concomitant]
  3. LENALIDOMIDE CAPSULE [Concomitant]

REACTIONS (3)
  - ENCEPHALITIS [None]
  - ENCEPHALOPATHY [None]
  - SPEECH DISORDER [None]
